FAERS Safety Report 20841608 (Version 1)
Quarter: 2022Q2

REPORT INFORMATION
  Report Type: Spontaneous
  Country: NL (occurrence: NL)
  Receive Date: 20220518
  Receipt Date: 20220518
  Transmission Date: 20220721
  Serious: Yes (Hospitalization, Other)
  Sender: FDA-Public Use
  Company Number: NL-SUNPHARMA-2022R1-333326AA

PATIENT
  Age: 71 Year
  Sex: Male

DRUGS (6)
  1. AZITHROMYCIN [Interacting]
     Active Substance: AZITHROMYCIN
     Indication: Antibiotic therapy
     Dosage: 6.25 MILLIGRAM/KILOGRAM, DAILY
     Route: 048
  2. MYCOPHENOLATE MOFETIL [Interacting]
     Active Substance: MYCOPHENOLATE MOFETIL
     Indication: Immunosuppression
     Dosage: 500 MILLIGRAM, BID
     Route: 065
  3. PREDNISOLONE [Interacting]
     Active Substance: PREDNISOLONE
     Indication: Immunosuppression
     Dosage: 5 MILLIGRAM, DAILY
     Route: 065
  4. TACROLIMUS [Interacting]
     Active Substance: TACROLIMUS
     Indication: Immunosuppression
     Dosage: 1 MILLIGRAM, BID
     Route: 065
  5. ETHAMBUTOL [Interacting]
     Active Substance: ETHAMBUTOL HYDROCHLORIDE
     Indication: Antibiotic therapy
     Dosage: 15 MILLIGRAM/KILOGRAM, DAILY
     Route: 065
  6. RIFAMPIN [Interacting]
     Active Substance: RIFAMPIN
     Indication: Antibiotic therapy
     Dosage: 7.5 MILLIGRAM/KILOGRAM, DAILY
     Route: 065

REACTIONS (5)
  - Mycobacterial infection [Unknown]
  - Hepatic failure [Unknown]
  - Renal failure [Unknown]
  - Toxicity to various agents [Unknown]
  - Drug interaction [Unknown]
